FAERS Safety Report 7358597-8 (Version None)
Quarter: 2011Q1

REPORT INFORMATION
  Report Type: 
  Country: None (occurrence: None)
  Receive Date: 20110317
  Receipt Date: 20110120
  Transmission Date: 20110831
  Serious: Yes (Hospitalization)
  Sender: FDA-Public Use
  Company Number: GXKR2011DK00659

PATIENT
  Sex: Female
  Weight: 68 kg

DRUGS (5)
  1. RIVOTRIL [Suspect]
     Indication: ANXIETY
     Route: 048
  2. RISOLID [Suspect]
     Indication: ANXIETY
     Route: 048
  3. BROMAM [Suspect]
     Indication: ANXIETY
     Route: 048
  4. HEXALID [Suspect]
     Indication: ANXIETY
     Route: 048
  5. ALOPAM [Suspect]
     Indication: ANXIETY
     Route: 048

REACTIONS (35)
  - MEMORY IMPAIRMENT [None]
  - MYALGIA [None]
  - PAIN [None]
  - EMOTIONAL DISORDER [None]
  - DEREALISATION [None]
  - TIC [None]
  - OBSESSIVE THOUGHTS [None]
  - SEDATION [None]
  - PALPITATIONS [None]
  - SKIN DISORDER [None]
  - HYPOAESTHESIA [None]
  - DIZZINESS [None]
  - ANXIETY [None]
  - FATIGUE [None]
  - DEPRESSION [None]
  - WEIGHT INCREASED [None]
  - BLADDER DISORDER [None]
  - TINNITUS [None]
  - FEELING ABNORMAL [None]
  - HYPERACUSIS [None]
  - ARTHRALGIA [None]
  - PHOTOSENSITIVITY REACTION [None]
  - NIGHTMARE [None]
  - ALOPECIA [None]
  - OEDEMA [None]
  - VISUAL IMPAIRMENT [None]
  - INSOMNIA [None]
  - CONFUSIONAL STATE [None]
  - ANGER [None]
  - ABNORMAL BEHAVIOUR [None]
  - DEPERSONALISATION [None]
  - DISTURBANCE IN ATTENTION [None]
  - GASTROINTESTINAL DISORDER [None]
  - NAUSEA [None]
  - WITHDRAWAL SYNDROME [None]
